FAERS Safety Report 15300165 (Version 1)
Quarter: 2018Q4

REPORT INFORMATION
  Report Type: Spontaneous
  Country: NL (occurrence: NL)
  Receive Date: 20180821
  Receipt Date: 20180821
  Transmission Date: 20190204
  Serious: Yes (Hospitalization, Other)
  Sender: FDA-Public Use
  Company Number: NL-AUROBINDO-AUR-APL-2018-041907

PATIENT
  Sex: Female

DRUGS (1)
  1. METRONIDAZOLE AUROBINDO 250 MG, FILM-COATED TABLET [Suspect]
     Active Substance: METRONIDAZOLE
     Indication: PRODUCT USED FOR UNKNOWN INDICATION
     Dosage: UNK
     Route: 048

REACTIONS (6)
  - Hypoaesthesia [Unknown]
  - Aphasia [Unknown]
  - Hallucination [Unknown]
  - Paraesthesia [Unknown]
  - Confusional state [Unknown]
  - Arthralgia [Unknown]
